FAERS Safety Report 25305669 (Version 1)
Quarter: 2025Q2

REPORT INFORMATION
  Report Type: Spontaneous
  Country: TR (occurrence: TR)
  Receive Date: 20250513
  Receipt Date: 20250513
  Transmission Date: 20250716
  Serious: Yes (Other)
  Sender: RANBAXY
  Company Number: TR-SUN PHARMACEUTICAL INDUSTRIES LTD-2025R1-507101

PATIENT
  Age: 6 Year
  Sex: Female
  Weight: 25 kg

DRUGS (7)
  1. CLARITHROMYCIN [Interacting]
     Active Substance: CLARITHROMYCIN
     Indication: Antibiotic therapy
     Dosage: 15 MILLIGRAM/KILOGRAM, DAILY
     Route: 065
  2. HYDROXYCHLOROQUINE [Interacting]
     Active Substance: HYDROXYCHLOROQUINE
     Indication: Pulmonary haemosiderosis
     Dosage: 2 MILLIGRAM/KILOGRAM, DAILY
     Route: 065
  3. HYDROXYCHLOROQUINE [Interacting]
     Active Substance: HYDROXYCHLOROQUINE
     Dosage: 4 MILLIGRAM/KILOGRAM, DAILY
     Route: 065
  4. HYDROXYCHLOROQUINE [Interacting]
     Active Substance: HYDROXYCHLOROQUINE
     Dosage: 5 MILLIGRAM/KILOGRAM, DAILY
     Route: 065
  5. METHYLPREDNISOLONE [Interacting]
     Active Substance: METHYLPREDNISOLONE
     Indication: Pulmonary haemosiderosis
     Route: 065
  6. METHYLPREDNISOLONE [Interacting]
     Active Substance: METHYLPREDNISOLONE
     Dosage: 2 MILLIGRAM/KILOGRAM, DAILY
     Route: 065
  7. CEFTRIAXONE [Concomitant]
     Active Substance: CEFTRIAXONE
     Indication: Antibiotic therapy
     Dosage: 75 MILLIGRAM/KILOGRAM, DAILY
     Route: 065

REACTIONS (7)
  - Myoclonus [Recovering/Resolving]
  - Diplopia [Recovering/Resolving]
  - Drug interaction [Unknown]
  - Restlessness [Recovering/Resolving]
  - Agitation [Recovering/Resolving]
  - Memory impairment [Recovering/Resolving]
  - Confusional state [Recovering/Resolving]
